FAERS Safety Report 22985926 (Version 2)
Quarter: 2024Q1

REPORT INFORMATION
  Report Type: Spontaneous
  Country: CA (occurrence: CA)
  Receive Date: 20230926
  Receipt Date: 20240314
  Transmission Date: 20240410
  Serious: Yes (Hospitalization, Other)
  Sender: FDA-Public Use
  Company Number: CA-FreseniusKabi-FK202314830

PATIENT
  Age: 62 Year
  Sex: Female

DRUGS (9)
  1. ETOPOSIDE [Suspect]
     Active Substance: ETOPOSIDE
     Indication: Plasma cell myeloma refractory
     Dosage: DOSAGE FORM: NOT SPECIFIED?ROA: UNKNOWN
  2. CYCLOPHOSPHAMIDE [Suspect]
     Active Substance: CYCLOPHOSPHAMIDE
     Indication: Plasma cell myeloma refractory
     Dosage: DOSAGE FORM: NOT SPECIFIED?ROA: UNKNOWN
  3. DEXAMETHASONE [Suspect]
     Active Substance: DEXAMETHASONE
     Indication: Plasma cell myeloma refractory
     Dosage: NOT SPECIFIED?ROA: UNKNOWN
  4. DOXORUBICIN [Suspect]
     Active Substance: DOXORUBICIN
     Indication: Plasma cell myeloma refractory
     Dosage: DOSAGE FORM: NOT SPECIFIED?ROA: UNKNOWN
  5. CISPLATIN [Suspect]
     Active Substance: CISPLATIN
     Indication: Plasma cell myeloma refractory
     Dosage: ROA: UNKNOWN
  6. CARFILZOMIB [Concomitant]
     Active Substance: CARFILZOMIB
     Indication: Product used for unknown indication
     Dosage: ROA: UNKNOWN?DOSAGE FORM: POWDER FOR SOLUTION INTRAVENOUS
  7. POMALIDOMIDE [Concomitant]
     Active Substance: POMALIDOMIDE
     Indication: Product used for unknown indication
     Dosage: DOSAGE FORM: CAPSULES?ROA: UNKNOWN
  8. PREDNISONE [Concomitant]
     Active Substance: PREDNISONE
     Indication: Product used for unknown indication
     Dosage: DOSAGE FORM: NOT SPECIFIED?ROA: UNKNOWN
  9. VENETOCLAX [Concomitant]
     Active Substance: VENETOCLAX
     Indication: Product used for unknown indication
     Dosage: ROA: UNKNOWN

REACTIONS (9)
  - Pyrexia [Recovering/Resolving]
  - Confusional state [Recovering/Resolving]
  - Cytopenia [Recovering/Resolving]
  - Disease progression [Recovering/Resolving]
  - Gastrointestinal disorder [Recovering/Resolving]
  - Plasma cell myeloma recurrent [Recovering/Resolving]
  - Bone marrow disorder [Recovering/Resolving]
  - Off label use [Recovering/Resolving]
  - Sepsis [Recovering/Resolving]
